FAERS Safety Report 5332124-9 (Version None)
Quarter: 2007Q2

REPORT INFORMATION
  Report Type: 
  Country: None (occurrence: None)
  Receive Date: 20070521
  Receipt Date: 20070504
  Transmission Date: 20071010
  Serious: Yes (Hospitalization)
  Sender: FDA-Public Use
  Company Number: S07-FRA-01919-01

PATIENT
  Age: 48 Year
  Sex: Female

DRUGS (4)
  1. ESCITALOPRAM [Suspect]
     Indication: DEPRESSION
     Dosage: 40 MG QD PO
     Route: 048
     Dates: start: 20070129, end: 20070503
  2. ESCITALOPRAM [Suspect]
     Indication: DEPRESSION
     Dosage: 30 MG QD PO
     Route: 048
     Dates: start: 20070503
  3. CLONAZEPAM [Suspect]
  4. TERCIAN (CYAMEMAZINE) [Suspect]

REACTIONS (3)
  - MAJOR DEPRESSION [None]
  - PRESCRIBED OVERDOSE [None]
  - THROMBOPHLEBITIS [None]
